FAERS Safety Report 21686045 (Version 8)
Quarter: 2024Q1

REPORT INFORMATION
  Report Type: Other
  Country: DE (occurrence: None)
  Receive Date: 20221206
  Receipt Date: 20240314
  Transmission Date: 20240410
  Serious: No
  Sender: FDA-Public Use
  Company Number: DE-ROCHE-3113489

PATIENT
  Age: 53 Year
  Sex: Female

DRUGS (21)
  1. OCREVUS [Suspect]
     Active Substance: OCRELIZUMAB
     Indication: Relapsing multiple sclerosis
     Route: 042
     Dates: start: 20220218
  2. OCREVUS [Suspect]
     Active Substance: OCRELIZUMAB
     Route: 042
     Dates: start: 20220304
  3. OCREVUS [Suspect]
     Active Substance: OCRELIZUMAB
     Route: 042
     Dates: start: 20220822
  4. SIMVASTATIN [Concomitant]
     Active Substance: SIMVASTATIN
     Indication: Dyslipidaemia
     Route: 048
     Dates: start: 201808
  5. VALSAMTRIO [Concomitant]
     Indication: Hypertension
     Route: 048
     Dates: start: 202104
  6. CHOLECALCIFEROL [Concomitant]
     Active Substance: CHOLECALCIFEROL
     Indication: Prophylaxis
     Route: 048
     Dates: start: 20211208
  7. ASPIRIN [Concomitant]
     Active Substance: ASPIRIN
     Indication: Hypertension
     Route: 048
     Dates: start: 202105
  8. BACLOFEN [Concomitant]
     Active Substance: BACLOFEN
     Indication: Symptomatic treatment
     Dosage: DOSE: 5?DOSE FREQUENCY: PRN (AS NEEDED)
     Route: 048
     Dates: start: 202302
  9. PRAMIPEXOLE [Concomitant]
     Active Substance: PRAMIPEXOLE\PRAMIPEXOLE DIHYDROCHLORIDE
     Dosage: DOSE: 0.26?DOSE FREQUENCY: QD (EVERY DAY)
     Route: 048
     Dates: start: 20230824
  10. BENSERAZIDE\LEVODOPA [Concomitant]
     Active Substance: BENSERAZIDE\LEVODOPA
     Dosage: DOSE: 100/25?DOSE FREQUENCY: QD (EVERY DAY)
     Route: 048
     Dates: start: 20230525
  11. TIZANIDINE [Concomitant]
     Active Substance: TIZANIDINE
     Dosage: DOSE: 2?DOSE FREQUENCY: PRN (AS NEEDED)
     Route: 048
     Dates: start: 20230824
  12. FERROUS GLYCINE SULFATE [Concomitant]
     Active Substance: FERROUS GLYCINE SULFATE
     Indication: Prophylaxis
     Dosage: DOSE: 100?DOSE FREQUENCY: BID (TWICE A DAY)
     Route: 048
     Dates: start: 20230829
  13. BUTYLSCOPOLAMINE BROMIDE [Concomitant]
     Active Substance: BUTYLSCOPOLAMINE BROMIDE
     Dosage: DOSE: UN?DOSE FREQUENCY: UNKNOWN
     Route: 048
     Dates: start: 202302, end: 202307
  14. AMLODIPINE BESYLATE [Concomitant]
     Active Substance: AMLODIPINE BESYLATE
     Indication: Hypertension
     Dosage: DOSE: 5?DOSE FREQUENCY: QD (EVERY DAY)
     Route: 048
     Dates: start: 202308
  15. HYDROCHLOROTHIAZIDE [Concomitant]
     Active Substance: HYDROCHLOROTHIAZIDE
     Indication: Hypertension
     Dosage: DOSE: 12.5?DOSE FREQUENCY: QD (EVERY DAY)
     Route: 048
     Dates: start: 202401
  16. PREDNISOLONE [Concomitant]
     Active Substance: PREDNISOLONE
     Indication: Premedication
     Route: 042
     Dates: start: 20220218, end: 20220218
  17. PREDNISOLONE [Concomitant]
     Active Substance: PREDNISOLONE
     Route: 042
     Dates: start: 20220304, end: 20220304
  18. PREDNISOLONE [Concomitant]
     Active Substance: PREDNISOLONE
     Route: 042
     Dates: start: 20220822, end: 20220822
  19. EBASTINE [Concomitant]
     Active Substance: EBASTINE
     Indication: Premedication
     Route: 048
     Dates: start: 20220217, end: 20220219
  20. EBASTINE [Concomitant]
     Active Substance: EBASTINE
     Route: 048
     Dates: start: 20220303, end: 20220305
  21. EBASTINE [Concomitant]
     Active Substance: EBASTINE
     Route: 048
     Dates: start: 20220821

REACTIONS (8)
  - Alanine aminotransferase increased [Not Recovered/Not Resolved]
  - Restless legs syndrome [Not Recovered/Not Resolved]
  - Infusion related reaction [Recovered/Resolved]
  - Urinary tract infection [Recovered/Resolved]
  - Lymphocyte count decreased [Recovered/Resolved]
  - C-reactive protein increased [Recovered/Resolved]
  - COVID-19 [Recovered/Resolved]
  - Red blood cell count increased [Not Recovered/Not Resolved]

NARRATIVE: CASE EVENT DATE: 20220304
